FAERS Safety Report 8033850-3 (Version None)
Quarter: 2012Q1

REPORT INFORMATION
  Report Type: 
  Country: None (occurrence: None)
  Receive Date: 20120110
  Receipt Date: 20120103
  Transmission Date: 20120608
  Serious: No
  Sender: FDA-Public Use
  Company Number: US-PFIZER INC-2012003345

PATIENT
  Sex: Male
  Weight: 77.098 kg

DRUGS (2)
  1. TRAZODONE HCL [Suspect]
     Dosage: UNK
  2. BENZATHINE PENICILLIN G [Suspect]
     Dosage: UNK

REACTIONS (4)
  - DYSPNOEA [None]
  - URTICARIA [None]
  - RASH [None]
  - DRUG HYPERSENSITIVITY [None]
